FAERS Safety Report 7144435-5 (Version None)
Quarter: 2010Q4

REPORT INFORMATION
  Report Type: 
  Country: None (occurrence: None)
  Receive Date: 20101208
  Receipt Date: 20100908
  Transmission Date: 20110411
  Serious: Yes (Hospitalization, Other)
  Sender: FDA-Public Use
  Company Number: US-BAYER-201012522NA

PATIENT

DRUGS (7)
  1. YASMIN [Suspect]
     Route: 048
     Dates: start: 20050101
  2. YASMIN [Suspect]
     Route: 048
     Dates: start: 20080101, end: 20090101
  3. YAZ [Suspect]
     Route: 048
     Dates: start: 20090101, end: 20090201
  4. YAZ [Suspect]
     Route: 048
     Dates: start: 20090501, end: 20090801
  5. OCELLA [Suspect]
     Route: 048
     Dates: start: 20081201, end: 20090501
  6. OCELLA [Suspect]
     Route: 048
     Dates: start: 20070101
  7. NAPROXEN [Concomitant]
     Route: 065

REACTIONS (23)
  - ABDOMINAL DISTENSION [None]
  - ABDOMINAL PAIN [None]
  - ABDOMINAL PAIN LOWER [None]
  - ANORECTAL DISORDER [None]
  - BREAST TENDERNESS [None]
  - CHOLECYSTECTOMY [None]
  - ERYTHEMA [None]
  - FLATULENCE [None]
  - FOOD INTOLERANCE [None]
  - FUNGAL INFECTION [None]
  - GALLBLADDER DISORDER [None]
  - GENITAL HAEMORRHAGE [None]
  - HAEMORRHOIDS [None]
  - HEADACHE [None]
  - HEPATIC STEATOSIS [None]
  - INTRADUCTAL PAPILLOMA OF BREAST [None]
  - OVARIAN CYST [None]
  - PETECHIAE [None]
  - POST PROCEDURAL DIARRHOEA [None]
  - PROCEDURAL NAUSEA [None]
  - PROCEDURAL PAIN [None]
  - PROCTITIS [None]
  - RECTAL HAEMORRHAGE [None]
